FAERS Safety Report 18749722 (Version 1)
Quarter: 2021Q1

REPORT INFORMATION
  Report Type: Report from Study
  Country: IT (occurrence: IT)
  Receive Date: 20210117
  Receipt Date: 20210117
  Transmission Date: 20210419
  Serious: Yes (Other)
  Sender: FDA-Public Use
  Company Number: IT-TEVA-2021-IT-1868670

PATIENT
  Age: 48 Year
  Sex: Female

DRUGS (5)
  1. FLUOROURACILE HIKMA [Suspect]
     Active Substance: FLUOROURACIL
     Indication: INVASIVE DUCTAL BREAST CARCINOMA
     Dosage: 750MILLIGRAM
     Dates: start: 20201130
  2. DECADRON [Concomitant]
     Active Substance: DEXAMETHASONE
     Indication: ANTIINFLAMMATORY THERAPY
     Dosage: 8MILLIGRAM
     Dates: start: 20201130
  3. EPIRUBICINA TEVA 2 MG/ML SOLUZIONE INIETTABILE O PER INFUSIONE [Suspect]
     Active Substance: EPIRUBICIN
     Indication: INVASIVE DUCTAL BREAST CARCINOMA
     Dosage: 100MILLIGRAM
     Route: 042
     Dates: start: 20201130
  4. ONDANSETRON HYDROCHLORIDE. [Concomitant]
     Active Substance: ONDANSETRON HYDROCHLORIDE
     Indication: VOMITING
     Dosage: 8MILLIGRAM
     Dates: start: 20201130
  5. ENDOXAN BAXTER [Suspect]
     Active Substance: CYCLOPHOSPHAMIDE
     Indication: INVASIVE DUCTAL BREAST CARCINOMA
     Dosage: 750MILIGRAM
     Dates: start: 20201130

REACTIONS (12)
  - Asthenia [Recovering/Resolving]
  - Vomiting [Recovering/Resolving]
  - Neutropenia [Recovering/Resolving]
  - Leukopenia [Recovering/Resolving]
  - Dysgeusia [Recovering/Resolving]
  - Nausea [Recovering/Resolving]
  - Feeling cold [Recovering/Resolving]
  - Alopecia [Recovering/Resolving]
  - Dermatitis acneiform [Recovering/Resolving]
  - Paraesthesia [Recovering/Resolving]
  - Infusion site pain [Recovering/Resolving]
  - Dry skin [Recovering/Resolving]

NARRATIVE: CASE EVENT DATE: 20201130
